FAERS Safety Report 7994833-2 (Version None)
Quarter: 2011Q4

REPORT INFORMATION
  Report Type: 
  Country: None (occurrence: None)
  Receive Date: 20111220
  Receipt Date: 20111216
  Transmission Date: 20120403
  Serious: Yes (Hospitalization)
  Sender: FDA-Public Use
  Company Number: ES-ROCHE-1016693

PATIENT
  Age: 35 Year
  Sex: Female

DRUGS (7)
  1. LEVOTHYROXINE SODIUM [Concomitant]
     Indication: THYROIDECTOMY
     Route: 048
  2. RIBAVIRIN [Interacting]
     Indication: HEPATITIS C
     Route: 065
     Dates: start: 20041016
  3. KINERET [Interacting]
     Indication: IMMUNE RECONSTITUTION SYNDROME
     Route: 065
     Dates: start: 20110829, end: 20110916
  4. PEGASYS [Suspect]
     Indication: HEPATITIS C
     Route: 065
     Dates: start: 20041016
  5. DEZACOR [Concomitant]
     Indication: IMMUNE RECONSTITUTION SYNDROME
     Route: 048
  6. PROZAC [Interacting]
     Indication: DEPRESSION
     Route: 048
     Dates: start: 20040101
  7. TRAMADOL HCL [Interacting]
     Indication: IMMUNE RECONSTITUTION SYNDROME
     Route: 048
     Dates: start: 20050101

REACTIONS (3)
  - DRUG INEFFECTIVE [None]
  - DRUG INTERACTION [None]
  - SOMNOLENCE [None]
